FAERS Safety Report 17815200 (Version 1)
Quarter: 2020Q2

REPORT INFORMATION
  Report Type: Spontaneous
  Country: CA (occurrence: CA)
  Receive Date: 20200522
  Receipt Date: 20200522
  Transmission Date: 20200714
  Serious: Yes (Other)
  Sender: FDA-Public Use
  Company Number: CA-DRREDDYS-USA/CAN/20/0123338

PATIENT
  Age: 64 Year
  Sex: Male
  Weight: 113 kg

DRUGS (1)
  1. ATORVASTATIN [Suspect]
     Active Substance: ATORVASTATIN
     Indication: BLOOD CHOLESTEROL
     Route: 048

REACTIONS (3)
  - Rash papular [Unknown]
  - Erythema [Unknown]
  - Dry skin [Unknown]
